FAERS Safety Report 9697985 (Version 1)
Quarter: 2013Q4

REPORT INFORMATION
  Report Type: Spontaneous
  Country: IT (occurrence: IT)
  Receive Date: 20131120
  Receipt Date: 20131120
  Transmission Date: 20140711
  Serious: Yes (Other)
  Sender: FDA-Public Use
  Company Number: IT-SA-2013SA119477

PATIENT
  Age: 83 Year
  Sex: Male

DRUGS (2)
  1. AMIODARONE [Suspect]
     Indication: ATRIAL FIBRILLATION
     Route: 048
     Dates: start: 2006, end: 201102
  2. DRONEDARONE [Suspect]
     Indication: ATRIAL FIBRILLATION
     Route: 048
     Dates: start: 201102

REACTIONS (9)
  - Deposit eye [Unknown]
  - Corneal opacity [Unknown]
  - Visual acuity tests abnormal [Unknown]
  - Photosensitivity reaction [Recovered/Resolved]
  - Pruritus [Recovered/Resolved]
  - Blister [Recovered/Resolved]
  - Nodule [Recovered/Resolved]
  - Skin exfoliation [Recovered/Resolved]
  - Scab [Recovered/Resolved]
